FAERS Safety Report 6758358-4 (Version None)
Quarter: 2010Q2

REPORT INFORMATION
  Report Type: 
  Country: None (occurrence: None)
  Receive Date: 20100524
  Receipt Date: 20100406
  Transmission Date: 20101027
  Serious: No
  Sender: FDA-Public Use
  Company Number: 009859

PATIENT
  Sex: Male

DRUGS (6)
  1. CIMZIA [Suspect]
     Indication: RHEUMATOID ARTHRITIS
     Dosage: SUBCUTANEOUS
     Route: 058
     Dates: start: 20100208
  2. NORVASC [Concomitant]
  3. ALLOPURINOL [Concomitant]
  4. MIRAPEX [Concomitant]
  5. ATARAX [Concomitant]
  6. ULTRAM [Concomitant]

REACTIONS (3)
  - ABDOMINAL PAIN [None]
  - INJECTION SITE DISCOLOURATION [None]
  - OEDEMA PERIPHERAL [None]
